FAERS Safety Report 15143308 (Version 3)
Quarter: 2018Q3

REPORT INFORMATION
  Report Type: Spontaneous
  Country: US (occurrence: US)
  Receive Date: 20180713
  Receipt Date: 20180812
  Transmission Date: 20181010
  Serious: Yes (Hospitalization, Other)
  Sender: FDA-Public Use
  Company Number: US-APOTEX-2018AP016957

PATIENT
  Age: 48 Year
  Sex: Female

DRUGS (1)
  1. FLUTICASONE PROPIONATE NASAL SPRAY USP [Suspect]
     Active Substance: FLUTICASONE PROPIONATE
     Indication: PRODUCT USED FOR UNKNOWN INDICATION
     Dosage: 1 DF, BID, 1 SPRAY IN EACH NOSTRIL
     Route: 065
     Dates: start: 20180302

REACTIONS (5)
  - Epistaxis [Recovered/Resolved]
  - Syncope [Unknown]
  - Influenza [Unknown]
  - Rhinalgia [Not Recovered/Not Resolved]
  - Paranasal sinus haemorrhage [Not Recovered/Not Resolved]

NARRATIVE: CASE EVENT DATE: 20180308
